FAERS Safety Report 8854472 (Version 1)
Quarter: 2012Q4

REPORT INFORMATION
  Report Type: Spontaneous
  Country: US (occurrence: None)
  Receive Date: 20121022
  Receipt Date: 20121022
  Transmission Date: 20130627
  Serious: Yes (Disabling)
  Sender: FDA-Public Use
  Company Number: None

PATIENT
  Age: 23 Year
  Sex: Male
  Weight: 72.58 kg

DRUGS (1)
  1. CEPHALEXIN [Suspect]
     Indication: TOOTH ABSCESS
     Dates: start: 20060312, end: 20060318

REACTIONS (3)
  - Tinnitus [None]
  - Insomnia [None]
  - Impaired work ability [None]
